FAERS Safety Report 22351916 (Version 1)
Quarter: 2023Q2

REPORT INFORMATION
  Report Type: Spontaneous
  Country: US (occurrence: None)
  Receive Date: 20230522
  Receipt Date: 20230522
  Transmission Date: 20230721
  Serious: No
  Sender: FDA-Public Use
  Company Number: None

PATIENT
  Age: 79 Year
  Sex: Female
  Weight: 58.06 kg

DRUGS (18)
  1. TYRVAYA [Suspect]
     Active Substance: VARENICLINE TARTRATE
     Indication: Dry eye
     Dosage: FREQUENCY : TWICE A DAY;?
     Route: 045
     Dates: start: 20230224, end: 20230423
  2. AMLODIPINE [Concomitant]
  3. BUSPAR [Concomitant]
     Active Substance: BUSPIRONE HYDROCHLORIDE
  4. IBUPROFEN [Concomitant]
     Active Substance: IBUPROFEN
  5. LEVOTHYROXINE [Concomitant]
     Active Substance: LEVOTHYROXINE
  6. LISINOPRIL [Concomitant]
  7. PREMARIN [Concomitant]
     Active Substance: ESTROGENS, CONJUGATED
  8. Regener-Eye [Concomitant]
  9. Hearing Aids [Concomitant]
  10. Hydro Eye [Concomitant]
  11. ALIGN [Concomitant]
     Active Substance: BIFIDOBACTERIUM LONGUM SUBSP. INFANTIS
  12. BIOTIN [Concomitant]
     Active Substance: BIOTIN
  13. VITAMIN D3 [Concomitant]
     Active Substance: CHOLECALCIFEROL
  14. Ester -C [Concomitant]
  15. VITAMIN B12 [Concomitant]
     Active Substance: CYANOCOBALAMIN
  16. MAGNESIUM [Concomitant]
  17. POTASSIUM GLUCONATE [Concomitant]
  18. ULTRA [Concomitant]

REACTIONS (8)
  - Erythema [None]
  - Erythema [None]
  - Peripheral swelling [None]
  - Peripheral swelling [None]
  - Peripheral swelling [None]
  - Peripheral swelling [None]
  - Rash [None]
  - Rash [None]

NARRATIVE: CASE EVENT DATE: 20230423
